FAERS Safety Report 5054687-3 (Version None)
Quarter: 2006Q2

REPORT INFORMATION
  Report Type: 
  Country: None (occurrence: None)
  Receive Date: 20060614
  Receipt Date: 20060314
  Transmission Date: 20061013
  Serious: No
  Sender: FDA-Public Use
  Company Number: US200603003534

PATIENT
  Age: 55 Year
  Sex: Male

DRUGS (2)
  1. CIALIS [Suspect]
     Indication: PROSTATECTOMY
     Dates: start: 20051201
  2. LIPITOR [Concomitant]

REACTIONS (1)
  - MUSCLE SPASMS [None]
